FAERS Safety Report 9732276 (Version 2)
Quarter: 2014Q1

REPORT INFORMATION
  Report Type: Spontaneous
  Country: US (occurrence: US)
  Receive Date: 20131205
  Receipt Date: 20140129
  Transmission Date: 20141002
  Serious: No
  Sender: FDA-Public Use
  Company Number: US-009507513-1312USA002033

PATIENT
  Age: 70 Year
  Sex: Female
  Weight: 86.4 kg

DRUGS (1)
  1. ASMANEX TWISTHALER [Suspect]
     Indication: COUGH
     Dosage: 110 MCG/INHALATION IN 1 INHALAER
     Route: 055
     Dates: start: 201309

REACTIONS (4)
  - Drug ineffective [Recovered/Resolved]
  - Cough [Recovered/Resolved]
  - Product dosage form issue [Unknown]
  - Off label use [Unknown]
